FAERS Safety Report 5814665-0 (Version None)
Quarter: 2008Q3

REPORT INFORMATION
  Report Type: 
  Country: None (occurrence: None)
  Receive Date: 20080718
  Receipt Date: 20080317
  Transmission Date: 20090109
  Serious: No
  Sender: FDA-Public Use
  Company Number: US-KINGPHARMUSA00001-K200800322

PATIENT

DRUGS (6)
  1. LEVOXYL [Suspect]
     Indication: HYPOTHYROIDISM
     Dates: end: 20070301
  2. LEVOXYL [Suspect]
     Dosage: 150 MCG, QD
     Dates: start: 20070301, end: 20080310
  3. LEVOXYL [Suspect]
     Dosage: 125 MCG, QD
     Dates: start: 20080310
  4. ASHUAGANDA [Concomitant]
     Indication: PHYTOTHERAPY
  5. SINGULAIR [Concomitant]
  6. AVELOX [Concomitant]

REACTIONS (4)
  - BLOOD THYROID STIMULATING HORMONE ABNORMAL [None]
  - BLOOD THYROID STIMULATING HORMONE DECREASED [None]
  - DIZZINESS [None]
  - SINUSITIS [None]
